FAERS Safety Report 24617810 (Version 1)
Quarter: 2024Q4

REPORT INFORMATION
  Report Type: Spontaneous
  Country: PT (occurrence: PT)
  Receive Date: 20241114
  Receipt Date: 20241114
  Transmission Date: 20250115
  Serious: Yes (Other)
  Sender: JOHNSON AND JOHNSON
  Company Number: PT-JNJFOC-20241126177

PATIENT
  Age: 60 Year

DRUGS (3)
  1. REMICADE [Suspect]
     Active Substance: INFLIXIMAB
     Indication: Ankylosing spondylitis
     Route: 041
     Dates: start: 2013
  2. REMICADE [Suspect]
     Active Substance: INFLIXIMAB
     Indication: Autoimmune haemolytic anaemia
  3. PREDNISONE [Concomitant]
     Active Substance: PREDNISONE
     Dates: start: 2013

REACTIONS (2)
  - T-cell lymphoma [Unknown]
  - Epstein-Barr virus test positive [Unknown]
